FAERS Safety Report 6608227-5 (Version None)
Quarter: 2010Q1

REPORT INFORMATION
  Report Type: 
  Country: None (occurrence: None)
  Receive Date: 20100301
  Receipt Date: 20100217
  Transmission Date: 20100710
  Serious: Yes (Other)
  Sender: FDA-Public Use
  Company Number: JP-ROCHE-639615

PATIENT
  Sex: Male
  Weight: 70 kg

DRUGS (21)
  1. ACTEMRA [Suspect]
     Indication: RHEUMATOID ARTHRITIS
     Route: 041
     Dates: start: 20080807, end: 20080807
  2. ACTEMRA [Suspect]
     Route: 041
     Dates: start: 20080904, end: 20080904
  3. ACTEMRA [Suspect]
     Route: 041
     Dates: start: 20081002, end: 20081002
  4. ACTEMRA [Suspect]
     Route: 041
     Dates: start: 20081030, end: 20081030
  5. ACTEMRA [Suspect]
     Route: 041
     Dates: start: 20081127, end: 20081127
  6. ACTEMRA [Suspect]
     Route: 041
     Dates: start: 20081225, end: 20081225
  7. ACTEMRA [Suspect]
     Route: 041
     Dates: start: 20090122, end: 20090122
  8. ACTEMRA [Suspect]
     Route: 041
     Dates: start: 20090101, end: 20090101
  9. ACTEMRA [Suspect]
     Route: 041
     Dates: start: 20090101
  10. PREDONINE [Concomitant]
     Route: 048
     Dates: start: 20061225, end: 20070422
  11. PREDONINE [Concomitant]
     Route: 048
     Dates: start: 20070423, end: 20080420
  12. PREDONINE [Concomitant]
     Route: 048
     Dates: start: 20080421, end: 20080629
  13. PREDONINE [Concomitant]
     Route: 048
     Dates: start: 20080630, end: 20080818
  14. PREDONINE [Concomitant]
     Route: 048
     Dates: start: 20080819, end: 20080915
  15. PREDONINE [Concomitant]
     Route: 048
     Dates: start: 20080916, end: 20081110
  16. PREDONINE [Concomitant]
     Route: 048
     Dates: start: 20081111, end: 20090218
  17. PREDONINE [Concomitant]
     Route: 048
     Dates: start: 20090219
  18. MOBIC [Concomitant]
     Route: 048
     Dates: start: 20061225, end: 20081014
  19. BLOPRESS [Concomitant]
     Route: 048
     Dates: start: 20061225
  20. MUCOSTA [Concomitant]
     Dosage: DOSE FORM: PER ORAL AGENT.
     Route: 048
     Dates: start: 20061225
  21. ZYLORIC [Concomitant]
     Route: 048
     Dates: start: 20081225

REACTIONS (2)
  - HYPERLIPIDAEMIA [None]
  - INTERSTITIAL LUNG DISEASE [None]
